FAERS Safety Report 7533201-4 (Version None)
Quarter: 2011Q2

REPORT INFORMATION
  Report Type: 
  Country: None (occurrence: None)
  Receive Date: 20110608
  Receipt Date: 20030306
  Transmission Date: 20111010
  Serious: Yes (Death, Life-Threatening, Hospitalization, Other)
  Sender: FDA-Public Use
  Company Number: PHBS2002CA11280

PATIENT
  Sex: Male

DRUGS (2)
  1. CLOZAPINE [Suspect]
     Dosage: 400 MG, QD
     Route: 048
     Dates: start: 19920306
  2. FLUVOXAMINE MALEATE [Concomitant]
     Dosage: 75 MG, QD
     Route: 048

REACTIONS (2)
  - GASTRIC CANCER [None]
  - PANCREATIC CARCINOMA [None]
